FAERS Safety Report 22090465 (Version 1)
Quarter: 2023Q1

REPORT INFORMATION
  Report Type: Spontaneous
  Country: US (occurrence: US)
  Receive Date: 20230313
  Receipt Date: 20230313
  Transmission Date: 20230417
  Serious: Yes (Hospitalization, Other)
  Sender: FDA-Public Use
  Company Number: US-BRISTOL-MYERS SQUIBB COMPANY-2023-035386

PATIENT
  Age: 83 Year
  Sex: Male
  Weight: 84.82 kg

DRUGS (1)
  1. REVLIMID [Suspect]
     Active Substance: LENALIDOMIDE
     Indication: Plasma cell myeloma
     Dosage: DAILY FOR 14DAYS
     Route: 048

REACTIONS (5)
  - Hypotension [Recovering/Resolving]
  - Thrombosis [Recovering/Resolving]
  - Heart rate increased [Recovering/Resolving]
  - Pulmonary thrombosis [Recovering/Resolving]
  - Off label use [Unknown]
